FAERS Safety Report 4475636-2 (Version None)
Quarter: 2004Q3

REPORT INFORMATION
  Report Type: 
  Country: None (occurrence: None)
  Receive Date: 20040923
  Receipt Date: 20040714
  Transmission Date: 20050211
  Serious: No
  Sender: FDA-Public Use
  Company Number: USA040772656

PATIENT
  Age: 59 Year
  Sex: Female

DRUGS (6)
  1. FORTEO [Suspect]
     Indication: OSTEOPOROSIS
     Dates: start: 20040401
  2. ACCUPRIL [Concomitant]
  3. LEXAPRO [Concomitant]
  4. PENTA-TRIAMTERENE HCTZ [Concomitant]
  5. MIACALCIN [Concomitant]
  6. ESTROGENS CONJUGATED W/MEDROXYPROGESTERONE [Concomitant]

REACTIONS (3)
  - BLOOD CALCIUM INCREASED [None]
  - DIZZINESS [None]
  - MUSCLE CRAMP [None]
